FAERS Safety Report 5215702-7 (Version None)
Quarter: 2007Q1

REPORT INFORMATION
  Report Type: 
  Country: None (occurrence: None)
  Receive Date: 20070123
  Receipt Date: 20070116
  Transmission Date: 20070707
  Serious: Yes (Life-Threatening)
  Sender: FDA-Public Use
  Company Number: NZ-PURDUE-USA_2007_0026223

PATIENT
  Age: 73 Year
  Sex: Male

DRUGS (5)
  1. NAPROXEN [Concomitant]
     Dosage: 500 MG, DAILY
     Route: 048
  2. PRAZOSIN HCL [Concomitant]
     Dosage: 2 MG, DAILY
     Route: 048
  3. LABETALOL HCL [Concomitant]
     Dosage: 100 MG, DAILY
     Route: 048
  4. FRUSEMIDE [Concomitant]
     Dosage: 40 MG, DAILY
     Route: 048
  5. DIHYDROCODEINE BITARTRATE (SIMILAR TO ANDA 88-584) [Suspect]
     Indication: DRUG USE FOR UNKNOWN INDICATION
     Dosage: 60 MG, DAILY
     Route: 048
     Dates: start: 19970301, end: 19970601

REACTIONS (1)
  - SUICIDAL IDEATION [None]
